FAERS Safety Report 22011144 (Version 1)
Quarter: 2023Q1

REPORT INFORMATION
  Report Type: Spontaneous
  Country: US (occurrence: US)
  Receive Date: 20230220
  Receipt Date: 20230220
  Transmission Date: 20230418
  Serious: No
  Sender: FDA-Public Use
  Company Number: US-SA-SAC20230220000258

PATIENT
  Sex: Female
  Weight: 77.11 kg

DRUGS (10)
  1. DUPIXENT [Suspect]
     Active Substance: DUPILUMAB
     Indication: Dermatitis atopic
     Dosage: 300 MG, QOW
     Route: 058
     Dates: start: 20220421
  2. ALLEGRA [Concomitant]
     Active Substance: FEXOFENADINE HYDROCHLORIDE
  3. ACRIVASTINE [Concomitant]
     Active Substance: ACRIVASTINE
  4. FLONASE [Concomitant]
     Active Substance: FLUTICASONE PROPIONATE
  5. FLUOCINONIDE [Concomitant]
     Active Substance: FLUOCINONIDE
  6. HYDROXYUREA [Concomitant]
     Active Substance: HYDROXYUREA
  7. VITAMINS NOS [Concomitant]
     Active Substance: VITAMINS
  8. XYLOMETAZOLINE HYDROCHLORIDE [Concomitant]
     Active Substance: XYLOMETAZOLINE HYDROCHLORIDE
  9. BETAMETHASONE [Concomitant]
     Active Substance: BETAMETHASONE
  10. PFIZER-BIONTECH COVID-19 VACCINE [Concomitant]
     Active Substance: TOZINAMERAN

REACTIONS (1)
  - Arthritis [Not Recovered/Not Resolved]
